FAERS Safety Report 22239457 (Version 1)
Quarter: 2023Q2

REPORT INFORMATION
  Report Type: Spontaneous
  Country: US (occurrence: None)
  Receive Date: 20230420
  Receipt Date: 20230420
  Transmission Date: 20230722
  Serious: Yes (Disabling, Other)
  Sender: FDA-Public Use
  Company Number: None

PATIENT
  Age: 51 Year
  Sex: Male
  Weight: 80.55 kg

DRUGS (7)
  1. DEXMETHYLPHENIDATE HYDROCHLORIDE [Suspect]
     Active Substance: DEXMETHYLPHENIDATE HYDROCHLORIDE
     Indication: Attention deficit hyperactivity disorder
     Dosage: OTHER QUANTITY : 1 CAPSULE(S);?FREQUENCY : DAILY;?
     Route: 048
     Dates: start: 20230211, end: 20230218
  2. Omeprazole (60 mg X twice per day) [Concomitant]
  3. Escitalopram Oxalate (10 mg) [Concomitant]
  4. Bupropion HCL (300 mg) [Concomitant]
  5. VITAMINS [Concomitant]
     Active Substance: VITAMINS
  6. CREATINE [Concomitant]
     Active Substance: CREATINE
  7. protein powder [Concomitant]

REACTIONS (3)
  - Peripheral swelling [None]
  - Pain [None]
  - Muscular weakness [None]

NARRATIVE: CASE EVENT DATE: 20230215
